FAERS Safety Report 6274867-9 (Version None)
Quarter: 2009Q3

REPORT INFORMATION
  Report Type: 
  Country: None (occurrence: None)
  Receive Date: 20090717
  Receipt Date: 20090702
  Transmission Date: 20100115
  Serious: Yes (Life-Threatening, Hospitalization)
  Sender: FDA-Public Use
  Company Number: 2009BM000141

PATIENT
  Age: 7 Year
  Sex: Female
  Weight: 16.3 kg

DRUGS (3)
  1. NAGLAZYME [Suspect]
     Indication: MUCOPOLYSACCHARIDOSIS VI
     Dosage: 4 VIALS;QW;IVDRP
     Route: 041
     Dates: start: 20090507
  2. ZYRTEC [Concomitant]
  3. ACETAMINOPHEN [Concomitant]

REACTIONS (3)
  - INFLUENZA [None]
  - OBSTRUCTIVE AIRWAYS DISORDER [None]
  - PULMONARY FUNCTION TEST DECREASED [None]
